FAERS Safety Report 6849226-8 (Version None)
Quarter: 2010Q3

REPORT INFORMATION
  Report Type: 
  Country: None (occurrence: None)
  Receive Date: 20100716
  Receipt Date: 20071017
  Transmission Date: 20110219
  Serious: Yes (Hospitalization)
  Sender: FDA-Public Use
  Company Number: US-PFIZER INC-2007080965

PATIENT
  Sex: Female

DRUGS (4)
  1. CHANTIX [Suspect]
     Dates: start: 20070101
  2. SEROQUEL [Interacting]
  3. KLONOPIN [Interacting]
  4. LEXAPRO [Interacting]

REACTIONS (4)
  - CRYING [None]
  - DRUG INTERACTION [None]
  - HEADACHE [None]
  - MIGRAINE [None]
